FAERS Safety Report 19743642 (Version 1)
Quarter: 2021Q3

REPORT INFORMATION
  Report Type: Spontaneous
  Country: US (occurrence: US)
  Receive Date: 20210823
  Receipt Date: 20210823
  Transmission Date: 20211014
  Serious: No
  Sender: FDA-Public Use
  Company Number: None

PATIENT
  Age: 64 Year
  Sex: Female

DRUGS (2)
  1. TEMOZOLOMIDE 100MG AMNEAL PHARMACEUTICALS [Suspect]
     Active Substance: TEMOZOLOMIDE
     Indication: BRAIN NEOPLASM MALIGNANT
     Dosage: ?          OTHER DOSE:3;OTHER FREQUENCY:QD/5DS PER 28DS.;?
     Route: 048
     Dates: start: 202103
  2. TEMOZOLOMIDE 100MG AMNEAL PHARMACEUTICALS [Suspect]
     Active Substance: TEMOZOLOMIDE
     Indication: BRAIN NEOPLASM MALIGNANT
     Dosage: ?          OTHER DOSE:1;OTHER FREQUENCY:QD/5DS PER 28DS.;?
     Route: 048
     Dates: start: 202102

REACTIONS (3)
  - Dyspnoea [None]
  - Pulmonary embolism [None]
  - Asthenia [None]

NARRATIVE: CASE EVENT DATE: 202105
